FAERS Safety Report 4885234-4 (Version None)
Quarter: 2005Q4

REPORT INFORMATION
  Report Type: 
  Country: None (occurrence: None)
  Receive Date: 20051216
  Receipt Date: 20051115
  Transmission Date: 20060501
  Serious: No
  Sender: FDA-Public Use
  Company Number: BDI-007746

PATIENT
  Age: 73 Year
  Sex: Female
  Weight: 70.45 kg

DRUGS (2)
  1. MULTIHANCE [Suspect]
     Indication: NUCLEAR MAGNETIC RESONANCE IMAGING
     Dosage: 10 ML ONCE IV
     Route: 042
     Dates: start: 20051115, end: 20051115
  2. MULTIHANCE [Suspect]
     Indication: PAIN
     Dosage: 10 ML ONCE IV
     Route: 042
     Dates: start: 20051115, end: 20051115

REACTIONS (2)
  - BURNING SENSATION [None]
  - HEADACHE [None]
